FAERS Safety Report 5847750-8 (Version None)
Quarter: 2008Q3

REPORT INFORMATION
  Report Type: 
  Country: None (occurrence: None)
  Receive Date: 20080814
  Receipt Date: 20080728
  Transmission Date: 20090109
  Serious: Yes (Other)
  Sender: FDA-Public Use
  Company Number: 2008S1013297

PATIENT
  Age: 14 Year
  Sex: Female

DRUGS (3)
  1. TRETINOIN [Suspect]
     Indication: ACUTE PROMYELOCYTIC LEUKAEMIA
     Dosage: 45 MG/M**2; DAILY
  2. FLUCONAZOLE [Suspect]
     Dosage: 3 MG/KG; DAILY
  3. MEROPENEM (MEROPENEM) [Concomitant]

REACTIONS (6)
  - FEBRILE NEUTROPENIA [None]
  - HAEMODIALYSIS [None]
  - PERITONEAL DIALYSIS [None]
  - PLATELET COUNT DECREASED [None]
  - RENAL FAILURE ACUTE [None]
  - SEPSIS [None]
